FAERS Safety Report 16806982 (Version 2)
Quarter: 2020Q1

REPORT INFORMATION
  Report Type: Report from Study
  Country: US (occurrence: US)
  Receive Date: 20190913
  Receipt Date: 20200220
  Transmission Date: 20200409
  Serious: No
  Sender: FDA-Public Use
  Company Number: US-SA-2019SA250643

PATIENT
  Age: 20 Year
  Sex: Female

DRUGS (2)
  1. DUPILUMAB [Suspect]
     Active Substance: DUPILUMAB
     Indication: ECZEMA
     Dosage: 600 MG, 1X
     Route: 058
     Dates: start: 20190712, end: 20190712
  2. DUPILUMAB [Suspect]
     Active Substance: DUPILUMAB
     Dosage: 300 MG, QOW
     Route: 058
     Dates: start: 201907

REACTIONS (8)
  - Rash [Not Recovered/Not Resolved]
  - Eye irritation [Unknown]
  - Oral pruritus [Unknown]
  - Discomfort [Unknown]
  - Ocular hyperaemia [Unknown]
  - Eczema [Unknown]
  - Oral discomfort [Unknown]
  - Insomnia [Not Recovered/Not Resolved]
